FAERS Safety Report 9876671 (Version 2)
Quarter: 2014Q1

REPORT INFORMATION
  Report Type: Other
  Country: US (occurrence: US)
  Receive Date: 20140206
  Receipt Date: 20140206
  Transmission Date: 20141002
  Serious: No
  Sender: FDA-Public Use
  Company Number: US-ACORDA-ACO_36566_2013

PATIENT
  Sex: Female
  Weight: 68.27 kg

DRUGS (16)
  1. AMPYRA [Suspect]
     Indication: GAIT DISTURBANCE
     Dosage: 10 MG, BID
     Route: 048
     Dates: start: 201304, end: 20130526
  2. AMPYRA [Suspect]
     Dosage: UNK
  3. PROVIGIL [Suspect]
     Indication: FATIGUE
     Dosage: 1 TAB AM, HALF AT NOON
     Dates: start: 20130205, end: 201304
  4. PROVIGIL [Suspect]
     Dosage: 200 MG, QD
     Dates: start: 201309
  5. RELAFEN [Concomitant]
     Indication: PAIN
     Dosage: 750 MG, 1-2 TABS BID
     Route: 048
     Dates: start: 20121015
  6. PAROXETINE [Concomitant]
     Indication: PRODUCT USED FOR UNKNOWN INDICATION
     Dosage: 30 MG, QD
     Route: 048
     Dates: start: 20130416
  7. SINGULAIR [Concomitant]
     Indication: PRODUCT USED FOR UNKNOWN INDICATION
     Dosage: 10 MG, QD
     Route: 048
     Dates: start: 20120513
  8. VITAMIN B12 [Concomitant]
     Indication: PRODUCT USED FOR UNKNOWN INDICATION
     Dosage: 1000 ?G, QD
     Route: 048
  9. VITAMIN D [Concomitant]
     Indication: PRODUCT USED FOR UNKNOWN INDICATION
     Dosage: UNK,UNK
     Route: 065
  10. CALCIUM +D [Concomitant]
     Indication: PRODUCT USED FOR UNKNOWN INDICATION
     Dosage: 1 UNK, QD
     Route: 048
  11. DONEPEZIL [Concomitant]
     Indication: PRODUCT USED FOR UNKNOWN INDICATION
     Dosage: UNK,UNK
     Route: 065
  12. FLEXERIL [Concomitant]
     Indication: PAIN
     Dosage: 5 MG, TID, PRN
     Route: 048
     Dates: start: 20121015
  13. FLEXERIL [Concomitant]
     Dosage: UNK, PRN
  14. VESICARE [Concomitant]
     Indication: BLADDER DISORDER
     Dosage: 5 MG, BID
     Route: 048
     Dates: start: 20121015, end: 20130228
  15. CLONAZEPAM [Concomitant]
     Indication: PRODUCT USED FOR UNKNOWN INDICATION
     Dosage: 0.5 MG, QD
     Route: 048
     Dates: start: 20130125
  16. VITAMIN D3 [Concomitant]
     Indication: PRODUCT USED FOR UNKNOWN INDICATION
     Dosage: 5000 IU, QD
     Route: 048

REACTIONS (5)
  - Fatigue [Unknown]
  - Fall [Unknown]
  - Contusion [Unknown]
  - Multiple sclerosis relapse [Recovered/Resolved]
  - Balance disorder [Unknown]
